FAERS Safety Report 7090140-3 (Version None)
Quarter: 2010Q4

REPORT INFORMATION
  Report Type: 
  Country: None (occurrence: None)
  Receive Date: 20101105
  Receipt Date: 20101105
  Transmission Date: 20110411
  Serious: No
  Sender: FDA-Public Use
  Company Number: None

PATIENT
  Age: 61 Year
  Sex: Female
  Weight: 56.6996 kg

DRUGS (1)
  1. BONIVA [Suspect]
     Indication: OSTEOPOROSIS
     Dosage: 1 50 MG ONCE A MONTH
     Dates: start: 20100816, end: 20100916

REACTIONS (10)
  - ABDOMINAL DISCOMFORT [None]
  - ARTHRALGIA [None]
  - BACK PAIN [None]
  - CONDOM [None]
  - DIZZINESS [None]
  - GASTRITIS [None]
  - HEADACHE [None]
  - INFECTION [None]
  - MUSCLE SPASMS [None]
  - PAIN [None]
